FAERS Safety Report 8875836 (Version 1)
Quarter: 2012Q4

REPORT INFORMATION
  Report Type: 
  Country: CN (occurrence: CN)
  Receive Date: 20121030
  Receipt Date: 20121030
  Transmission Date: 20130627
  Serious: Yes (Life-Threatening, Hospitalization)
  Sender: FDA-Public Use
  Company Number: CN-GLAXOSMITHKLINE-B0839768A

PATIENT
  Age: 57 Year
  Sex: Male

DRUGS (1)
  1. ZINACEF [Suspect]
     Indication: PYREXIA
     Route: 042
     Dates: start: 201006, end: 201006

REACTIONS (16)
  - Anaphylactic shock [Recovered/Resolved]
  - Myocardial ischaemia [Unknown]
  - Rhythm idioventricular [Unknown]
  - Chest discomfort [Unknown]
  - Chest discomfort [Unknown]
  - Flushing [Unknown]
  - Oropharyngeal discomfort [Unknown]
  - Aphasia [Unknown]
  - Cyanosis [Unknown]
  - Salivary hypersecretion [Unknown]
  - Dyspnoea [Unknown]
  - Pulse absent [Unknown]
  - Blood pressure abnormal [Unknown]
  - Depressed level of consciousness [Unknown]
  - Nausea [Unknown]
  - Vomiting [Unknown]
